FAERS Safety Report 5999472-0 (Version None)
Quarter: 2008Q4

REPORT INFORMATION
  Report Type: 
  Country: None (occurrence: None)
  Receive Date: 20081211
  Receipt Date: 20081202
  Transmission Date: 20090506
  Serious: Yes (Death)
  Sender: FDA-Public Use
  Company Number: GXKR2008NZ11513

PATIENT
  Sex: Male

DRUGS (4)
  1. PROPRANOLOL [Suspect]
     Indication: CARDIOMYOPATHY
     Dosage: 1 MG, 2 DOSES, INTRAVENOUS
     Route: 042
  2. ANTIBIOTICS (NO INGREDIENTS/SUBSTANCES) [Concomitant]
  3. CARBIMAZOLE (CARBIMAZOLE) [Concomitant]
  4. HYDROCORTISONE [Concomitant]

REACTIONS (6)
  - BLOOD PRESSURE DECREASED [None]
  - ELECTROMECHANICAL DISSOCIATION [None]
  - ENDOTRACHEAL INTUBATION [None]
  - GENERAL PHYSICAL HEALTH DETERIORATION [None]
  - HEART RATE DECREASED [None]
  - TREATMENT NONCOMPLIANCE [None]
